FAERS Safety Report 24537594 (Version 1)
Quarter: 2024Q4

REPORT INFORMATION
  Report Type: Spontaneous
  Country: US (occurrence: US)
  Receive Date: 20241023
  Receipt Date: 20241023
  Transmission Date: 20250115
  Serious: Yes (Other)
  Sender: AUROBINDO
  Company Number: US-AUROBINDO-AUR-APL-2024-051303

PATIENT
  Age: 77 Year
  Sex: Male

DRUGS (1)
  1. METHYLPREDNISOLONE [Suspect]
     Active Substance: METHYLPREDNISOLONE
     Indication: Radiation pneumonitis
     Dosage: 500 MILLIGRAM, ONCE A DAY FOR 14 DAYS
     Route: 042

REACTIONS (1)
  - Drug ineffective [Unknown]
